FAERS Safety Report 21194943 (Version 7)
Quarter: 2023Q1

REPORT INFORMATION
  Report Type: Report from Study
  Country: US (occurrence: US)
  Receive Date: 20220810
  Receipt Date: 20230130
  Transmission Date: 20230418
  Serious: No
  Sender: FDA-Public Use
  Company Number: US-NOVARTISTESTPH-NVSC2022US180317

PATIENT
  Sex: Male

DRUGS (1)
  1. PROMACTA [Suspect]
     Active Substance: ELTROMBOPAG OLAMINE
     Indication: Product used for unknown indication
     Dosage: UNK
     Route: 065

REACTIONS (10)
  - Platelet count decreased [Unknown]
  - Visual impairment [Unknown]
  - Faeces discoloured [Unknown]
  - Decreased appetite [Unknown]
  - Asthenia [Unknown]
  - Platelet count increased [Unknown]
  - Diarrhoea [Unknown]
  - Product use issue [Unknown]
  - Product dose omission issue [Unknown]
  - Drug ineffective [Unknown]
